FAERS Safety Report 10043835 (Version 2)
Quarter: 2014Q1

REPORT INFORMATION
  Report Type: Report from Study
  Country: JP (occurrence: JP)
  Receive Date: 20140328
  Receipt Date: 20140328
  Transmission Date: 20141002
  Serious: Yes (Death, Other)
  Sender: FDA-Public Use
  Company Number: JP-SA-THYM-1003857

PATIENT
  Age: 52 Year
  Sex: Male
  Weight: 61 kg

DRUGS (13)
  1. THYMOGLOBULIN [Suspect]
     Indication: BONE MARROW CONDITIONING REGIMEN
     Dosage: 157.5 MG, QD
     Route: 065
     Dates: start: 20120530, end: 20120530
  2. MEROPENEM [Concomitant]
     Indication: PROPHYLAXIS
     Dosage: UNK
     Dates: start: 20120929, end: 20121012
  3. INTRALIPOS [Concomitant]
     Indication: NON-HODGKIN^S LYMPHOMA
     Dosage: UNK
     Dates: start: 20121011, end: 20121016
  4. INTRALIPOS [Concomitant]
     Indication: HYPOALBUMINAEMIA
     Dosage: UNK
     Dates: start: 20121011, end: 20121016
  5. INTRALIPOS [Concomitant]
     Indication: ASCITES
     Dosage: UNK
     Dates: start: 20121011, end: 20121016
  6. VANCOMYCIN [Concomitant]
     Indication: PROPHYLAXIS
     Dosage: UNK
     Dates: start: 20120530, end: 20120812
  7. VANCOMYCIN [Concomitant]
     Indication: PROPHYLAXIS
     Dosage: UNK
     Dates: start: 20120530, end: 20120812
  8. VANCOMYCIN [Concomitant]
     Indication: PROPHYLAXIS
     Dosage: UNK
     Dates: start: 20120530, end: 20120812
  9. METHYLPREDNISOLONE SODIUM SUCCINATE [Concomitant]
     Indication: PROPHYLAXIS
     Dosage: UNK
     Dates: start: 20120220, end: 20121024
  10. VORICONAZOLE [Concomitant]
     Indication: PROPHYLAXIS
     Dosage: UNK
     Dates: start: 20120530, end: 20120905
  11. CHLORPHENAMINE MALEATE [Concomitant]
     Indication: PROPHYLAXIS
     Dosage: UNK
     Dates: start: 20120530, end: 20120530
  12. BAKTAR [Concomitant]
     Indication: PROPHYLAXIS
     Dosage: UNK
     Dates: start: 20120229, end: 20121001
  13. TACROLIMUS [Concomitant]
     Indication: PROPHYLAXIS
     Dosage: UNK
     Dates: start: 20120531, end: 20120723

REACTIONS (13)
  - Acute graft versus host disease in skin [Unknown]
  - Acute graft versus host disease [Unknown]
  - Retinopathy [Not Recovered/Not Resolved]
  - Atrial fibrillation [Not Recovered/Not Resolved]
  - Renal impairment [Not Recovered/Not Resolved]
  - Peptic ulcer haemorrhage [Not Recovered/Not Resolved]
  - Ascites [Not Recovered/Not Resolved]
  - Non-Hodgkin^s lymphoma [Fatal]
  - Cytomegalovirus enterocolitis [Not Recovered/Not Resolved]
  - Clostridium colitis [Recovered/Resolved]
  - Systemic mycosis [Recovered/Resolved]
  - Sepsis [Not Recovered/Not Resolved]
  - Hepatic function abnormal [Not Recovered/Not Resolved]
